FAERS Safety Report 12705286 (Version 2)
Quarter: 2016Q3

REPORT INFORMATION
  Report Type: Spontaneous
  Country: CN (occurrence: CN)
  Receive Date: 20160831
  Receipt Date: 20160902
  Transmission Date: 20161109
  Serious: Yes (Other)
  Sender: FDA-Public Use
  Company Number: CN-TAKEDA-2016MPI007578

PATIENT

DRUGS (4)
  1. VELCADE [Suspect]
     Active Substance: BORTEZOMIB
     Dosage: 1.3 MG/M2, QD
     Route: 042
  2. VELCADE [Suspect]
     Active Substance: BORTEZOMIB
     Indication: PLASMA CELL MYELOMA
     Dosage: 1.3 MG/M2, QD
     Route: 058
  3. DEXAMETHASONE. [Suspect]
     Active Substance: DEXAMETHASONE
     Indication: PLASMA CELL MYELOMA
     Dosage: 40 MG, QD
     Route: 048
  4. THALIDOMIDE [Suspect]
     Active Substance: THALIDOMIDE
     Indication: PLASMA CELL MYELOMA
     Dosage: 200 MG, QD
     Route: 048

REACTIONS (23)
  - Skin disorder [Unknown]
  - Leukopenia [Unknown]
  - Injection site reaction [Unknown]
  - Neuralgia [Unknown]
  - Fatigue [Unknown]
  - Thrombocytopenia [Unknown]
  - Injection site erythema [Unknown]
  - Hepatobiliary disease [Unknown]
  - Mental disorder [Unknown]
  - Diarrhoea [Unknown]
  - Asthenia [Unknown]
  - Weight decreased [Unknown]
  - Pneumonia [Unknown]
  - Nausea [Unknown]
  - Eye disorder [Unknown]
  - Urinary tract disorder [Unknown]
  - Peripheral sensory neuropathy [Unknown]
  - Anaemia [Unknown]
  - Renal disorder [Unknown]
  - Neutropenia [Unknown]
  - Pyrexia [Unknown]
  - Vomiting [Unknown]
  - Constipation [Unknown]
